FAERS Safety Report 25222692 (Version 2)
Quarter: 2025Q2

REPORT INFORMATION
  Report Type: Spontaneous
  Country: US (occurrence: US)
  Receive Date: 20250422
  Receipt Date: 20250619
  Transmission Date: 20250716
  Serious: Yes (Other)
  Sender: SANOFI AVENTIS
  Company Number: US-SA-2025SA112555

PATIENT
  Sex: Female
  Weight: 78.27 kg

DRUGS (7)
  1. DUPIXENT [Suspect]
     Active Substance: DUPILUMAB
     Indication: Herpes zoster
     Dosage: 300 MG, QOW
     Route: 058
  2. FOLIC ACID [Concomitant]
     Active Substance: FOLIC ACID
  3. FLUTICASONE PROPIONATE [Concomitant]
     Active Substance: FLUTICASONE PROPIONATE
  4. TRAZODONE [Concomitant]
     Active Substance: TRAZODONE HYDROCHLORIDE
  5. LORAZEPAM [Concomitant]
     Active Substance: LORAZEPAM
  6. RINVOQ [Concomitant]
     Active Substance: UPADACITINIB
  7. REMICADE [Concomitant]
     Active Substance: INFLIXIMAB

REACTIONS (2)
  - Pneumonia [Unknown]
  - Product use in unapproved indication [Unknown]
